FAERS Safety Report 5145314-5 (Version None)
Quarter: 2006Q4

REPORT INFORMATION
  Report Type: 
  Country: None (occurrence: None)
  Receive Date: 20061101
  Receipt Date: 20061018
  Transmission Date: 20070319
  Serious: Yes (Disabling)
  Sender: FDA-Public Use
  Company Number: 2006SP004022

PATIENT
  Age: 77 Year
  Sex: Female
  Weight: 80 kg

DRUGS (8)
  1. NASONEX [Suspect]
     Indication: RHINITIS
     Dosage: QD; NAS
     Route: 045
     Dates: start: 20050301, end: 20050401
  2. EFFEXOR [Concomitant]
  3. ISKEDYL [Concomitant]
  4. LEVOTHYROXINE SODIUM [Concomitant]
  5. HYZAAR [Concomitant]
  6. ICAZ [Concomitant]
  7. PIASCLEDINE [Concomitant]
  8. VASTEN [Concomitant]

REACTIONS (1)
  - ANOSMIA [None]
